FAERS Safety Report 22620452 (Version 1)
Quarter: 2023Q2

REPORT INFORMATION
  Report Type: Report from Study
  Country: GB (occurrence: GB)
  Receive Date: 20230620
  Receipt Date: 20230620
  Transmission Date: 20230721
  Serious: Yes (Hospitalization)
  Sender: FDA-Public Use
  Company Number: GB-TAKEDA-2023TUS058621

PATIENT
  Sex: Male

DRUGS (130)
  1. IDURSULFASE [Suspect]
     Active Substance: IDURSULFASE
     Indication: Mucopolysaccharidosis II
     Dosage: 0.52 MILLIGRAM/KILOGRAM, 1/WEEK
     Route: 042
     Dates: start: 20070419
  2. IDURSULFASE [Suspect]
     Active Substance: IDURSULFASE
     Dosage: 0.59 MILLIGRAM/KILOGRAM, 1/WEEK
     Route: 042
     Dates: start: 20100429
  3. ALBUTEROL [Concomitant]
     Active Substance: ALBUTEROL
     Indication: Respiratory disorder
     Dosage: UNK
     Route: 055
     Dates: end: 2001
  4. Emulsifying ointment BP [Concomitant]
     Indication: Immune system disorder
     Dosage: UNK
     Route: 061
     Dates: start: 1998, end: 1998
  5. CEFOTAXIME [Concomitant]
     Active Substance: CEFOTAXIME SODIUM
     Indication: Infection
     Dosage: UNK
     Route: 042
     Dates: start: 2001, end: 2001
  6. CEFOTAXIME [Concomitant]
     Active Substance: CEFOTAXIME SODIUM
     Indication: Pneumonia
     Dosage: UNK
     Route: 042
     Dates: start: 20120424, end: 20120427
  7. ERYTHROMYCIN [Concomitant]
     Active Substance: ERYTHROMYCIN
     Indication: Infection
     Dosage: UNK
     Route: 048
     Dates: start: 2001, end: 2001
  8. BUDESONIDE [Concomitant]
     Active Substance: BUDESONIDE
     Indication: Respiratory disorder
     Dosage: UNK
     Route: 055
     Dates: start: 20010109, end: 20030703
  9. TERBUTALINE [Concomitant]
     Active Substance: TERBUTALINE
     Indication: Respiratory disorder
     Dosage: UNK
     Route: 055
     Dates: start: 20010109, end: 20030703
  10. CEFACLOR [Concomitant]
     Active Substance: CEFACLOR
     Indication: Infection
     Dosage: UNK
     Route: 048
     Dates: start: 200111, end: 200111
  11. CEFACLOR [Concomitant]
     Active Substance: CEFACLOR
     Indication: Chest discomfort
     Dosage: UNK
     Route: 048
     Dates: start: 200304, end: 20030424
  12. CEFACLOR [Concomitant]
     Active Substance: CEFACLOR
     Dosage: UNK
     Route: 050
     Dates: start: 20110525, end: 20110601
  13. AMOXICILLIN [Concomitant]
     Active Substance: AMOXICILLIN
     Indication: Infection
     Dosage: UNK
     Route: 042
     Dates: start: 20020819, end: 20020819
  14. AMOXICILLIN [Concomitant]
     Active Substance: AMOXICILLIN
     Indication: Lower respiratory tract infection
     Dosage: UNK
     Route: 048
     Dates: start: 200610, end: 200610
  15. AMOXICILLIN [Concomitant]
     Active Substance: AMOXICILLIN
     Indication: Respiratory tract infection
     Dosage: UNK
     Route: 048
     Dates: start: 20100503, end: 20100514
  16. AMOXICILLIN [Concomitant]
     Active Substance: AMOXICILLIN
     Indication: Rhinorrhoea
     Dosage: UNK
     Route: 048
     Dates: start: 20100610, end: 20100616
  17. AMOXICILLIN [Concomitant]
     Active Substance: AMOXICILLIN
     Indication: Cough
     Dosage: UNK
     Route: 048
     Dates: start: 20100706, end: 20100713
  18. AMOXICILLIN [Concomitant]
     Active Substance: AMOXICILLIN
     Indication: Pyrexia
     Dosage: UNK
     Route: 050
     Dates: start: 20101229, end: 20110108
  19. AMOXICILLIN [Concomitant]
     Active Substance: AMOXICILLIN
     Dosage: UNK
     Route: 050
     Dates: start: 20110404, end: 20110409
  20. AMOXICILLIN [Concomitant]
     Active Substance: AMOXICILLIN
     Dosage: UNK
     Route: 050
     Dates: start: 20110521, end: 20110525
  21. AMOXICILLIN [Concomitant]
     Active Substance: AMOXICILLIN
     Dosage: UNK
     Route: 048
     Dates: start: 20110721, end: 20110727
  22. AMOXICILLIN [Concomitant]
     Active Substance: AMOXICILLIN
     Dosage: UNK
     Route: 050
     Dates: start: 20120121, end: 20120124
  23. MORPHINE [Concomitant]
     Active Substance: MORPHINE
     Indication: Pain
     Dosage: UNK
     Route: 042
     Dates: start: 20020819, end: 20020819
  24. MORPHINE [Concomitant]
     Active Substance: MORPHINE
     Indication: Pneumonia
     Dosage: UNK
     Route: 042
     Dates: start: 20120427, end: 20120427
  25. ONDANSETRON [Concomitant]
     Active Substance: ONDANSETRON
     Indication: Gastrointestinal disorder
     Dosage: UNK
     Route: 042
     Dates: start: 20020819, end: 20020819
  26. AMOXICILLIN\CLAVULANATE POTASSIUM [Concomitant]
     Active Substance: AMOXICILLIN\CLAVULANATE POTASSIUM
     Indication: Infection
     Dosage: UNK
     Route: 048
     Dates: start: 20030424, end: 20030429
  27. AMOXICILLIN\CLAVULANATE POTASSIUM [Concomitant]
     Active Substance: AMOXICILLIN\CLAVULANATE POTASSIUM
     Indication: Lower respiratory tract infection
     Dosage: UNK
     Route: 048
     Dates: start: 2004, end: 2004
  28. AMOXICILLIN\CLAVULANATE POTASSIUM [Concomitant]
     Active Substance: AMOXICILLIN\CLAVULANATE POTASSIUM
     Indication: Secretion discharge
     Dosage: UNK
     Route: 048
     Dates: start: 20050419, end: 20050425
  29. AMOXICILLIN\CLAVULANATE POTASSIUM [Concomitant]
     Active Substance: AMOXICILLIN\CLAVULANATE POTASSIUM
     Indication: Rhinitis
     Dosage: UNK
     Route: 048
     Dates: start: 20051031, end: 200511
  30. AMOXICILLIN\CLAVULANATE POTASSIUM [Concomitant]
     Active Substance: AMOXICILLIN\CLAVULANATE POTASSIUM
     Indication: Upper respiratory tract infection
     Dosage: UNK
     Route: 042
     Dates: start: 20060421, end: 20060423
  31. AMOXICILLIN\CLAVULANATE POTASSIUM [Concomitant]
     Active Substance: AMOXICILLIN\CLAVULANATE POTASSIUM
     Dosage: UNK
     Route: 048
     Dates: start: 20060423, end: 200604
  32. AMOXICILLIN\CLAVULANATE POTASSIUM [Concomitant]
     Active Substance: AMOXICILLIN\CLAVULANATE POTASSIUM
     Dosage: UNK
     Route: 048
     Dates: start: 20090501, end: 20090503
  33. AMOXICILLIN\CLAVULANATE POTASSIUM [Concomitant]
     Active Substance: AMOXICILLIN\CLAVULANATE POTASSIUM
     Dosage: UNK
     Route: 048
     Dates: start: 20100112, end: 2010
  34. AMOXICILLIN\CLAVULANATE POTASSIUM [Concomitant]
     Active Substance: AMOXICILLIN\CLAVULANATE POTASSIUM
     Dosage: UNK
     Route: 048
     Dates: start: 20100720, end: 20100727
  35. AMOXICILLIN\CLAVULANATE POTASSIUM [Concomitant]
     Active Substance: AMOXICILLIN\CLAVULANATE POTASSIUM
     Dosage: UNK
     Route: 048
     Dates: start: 20100830, end: 20100912
  36. AMOXICILLIN\CLAVULANATE POTASSIUM [Concomitant]
     Active Substance: AMOXICILLIN\CLAVULANATE POTASSIUM
     Dosage: UNK
     Route: 048
     Dates: start: 20100921, end: 20101011
  37. AMOXICILLIN\CLAVULANATE POTASSIUM [Concomitant]
     Active Substance: AMOXICILLIN\CLAVULANATE POTASSIUM
     Dosage: UNK
     Route: 048
     Dates: start: 20100929, end: 20101004
  38. AMOXICILLIN\CLAVULANATE POTASSIUM [Concomitant]
     Active Substance: AMOXICILLIN\CLAVULANATE POTASSIUM
     Dosage: UNK
     Route: 050
     Dates: start: 20110214, end: 20110220
  39. AMOXICILLIN\CLAVULANATE POTASSIUM [Concomitant]
     Active Substance: AMOXICILLIN\CLAVULANATE POTASSIUM
     Dosage: UNK
     Route: 050
     Dates: start: 20110420, end: 20110424
  40. AMOXICILLIN\CLAVULANATE POTASSIUM [Concomitant]
     Active Substance: AMOXICILLIN\CLAVULANATE POTASSIUM
     Dosage: UNK
     Route: 048
     Dates: start: 20110510, end: 20110513
  41. AMOXICILLIN\CLAVULANATE POTASSIUM [Concomitant]
     Active Substance: AMOXICILLIN\CLAVULANATE POTASSIUM
     Dosage: UNK
     Route: 050
     Dates: start: 20110927, end: 20111002
  42. AMOXICILLIN\CLAVULANATE POTASSIUM [Concomitant]
     Active Substance: AMOXICILLIN\CLAVULANATE POTASSIUM
     Dosage: UNK
     Route: 050
     Dates: start: 20111011, end: 20111018
  43. AMOXICILLIN\CLAVULANATE POTASSIUM [Concomitant]
     Active Substance: AMOXICILLIN\CLAVULANATE POTASSIUM
     Dosage: UNK
     Route: 050
     Dates: start: 20111225, end: 20120105
  44. AMOXICILLIN\CLAVULANATE POTASSIUM [Concomitant]
     Active Substance: AMOXICILLIN\CLAVULANATE POTASSIUM
     Dosage: UNK
     Route: 050
     Dates: start: 20120403, end: 20120408
  45. ENALAPRIL [Concomitant]
     Active Substance: ENALAPRIL
     Indication: Cardiovascular disorder
     Dosage: UNK
     Route: 048
     Dates: start: 20040819, end: 20060522
  46. ENALAPRIL [Concomitant]
     Active Substance: ENALAPRIL
     Indication: Mitral valve disease
     Dosage: UNK
     Route: 048
     Dates: start: 20060522, end: 20061128
  47. ENALAPRIL [Concomitant]
     Active Substance: ENALAPRIL
     Dosage: UNK
     Route: 048
     Dates: start: 20061128, end: 20120215
  48. ENALAPRIL [Concomitant]
     Active Substance: ENALAPRIL
     Dosage: UNK
     Route: 048
     Dates: start: 20120215, end: 20120427
  49. ACETAMINOPHEN [Concomitant]
     Active Substance: ACETAMINOPHEN
     Indication: Pain
     Dosage: UNK
     Route: 048
     Dates: start: 20051031, end: 200511
  50. ACETAMINOPHEN [Concomitant]
     Active Substance: ACETAMINOPHEN
     Indication: Premedication
     Dosage: UNK
     Route: 048
     Dates: start: 20070510, end: 20091102
  51. ACETAMINOPHEN [Concomitant]
     Active Substance: ACETAMINOPHEN
     Indication: Lower respiratory tract infection
     Dosage: UNK
     Route: 048
     Dates: start: 20090430, end: 20120427
  52. ACETAMINOPHEN [Concomitant]
     Active Substance: ACETAMINOPHEN
     Indication: Pneumonia
     Dosage: UNK
     Route: 048
     Dates: start: 20091102, end: 20120427
  53. ACETAMINOPHEN [Concomitant]
     Active Substance: ACETAMINOPHEN
     Dosage: UNK
     Route: 048
     Dates: start: 20100721, end: 20100721
  54. ACETAMINOPHEN [Concomitant]
     Active Substance: ACETAMINOPHEN
     Dosage: UNK
     Route: 050
     Dates: start: 20100929, end: 20101002
  55. ACETAMINOPHEN [Concomitant]
     Active Substance: ACETAMINOPHEN
     Dosage: UNK
     Route: 050
     Dates: start: 20120425, end: 20120426
  56. CHLORPHENIRAMINE [Concomitant]
     Active Substance: CHLORPHENIRAMINE
     Indication: Premedication
     Dosage: UNK
     Route: 048
     Dates: start: 20070419, end: 20080313
  57. CHLORPHENIRAMINE [Concomitant]
     Active Substance: CHLORPHENIRAMINE
     Indication: Urticaria
     Dosage: UNK
     Route: 042
     Dates: start: 20091027, end: 20091027
  58. CHLORPHENIRAMINE [Concomitant]
     Active Substance: CHLORPHENIRAMINE
     Dosage: UNK
     Route: 048
     Dates: start: 20091110, end: 200911
  59. EMLA [Concomitant]
     Active Substance: LIDOCAINE\PRILOCAINE
     Indication: Venipuncture
     Dosage: UNK
     Route: 061
     Dates: start: 20070419, end: 20070427
  60. PENICILLIN [Concomitant]
     Active Substance: PENICILLIN
     Indication: Infection
     Dosage: UNK
     Route: 048
     Dates: start: 20070505, end: 20070510
  61. RANITIDINE [Concomitant]
     Active Substance: RANITIDINE
     Indication: Premedication
     Dosage: UNK
     Route: 048
     Dates: start: 20070510, end: 20080131
  62. RANITIDINE [Concomitant]
     Active Substance: RANITIDINE
     Dosage: UNK
     Route: 048
     Dates: start: 20091110, end: 20120427
  63. CLARITHROMYCIN [Concomitant]
     Active Substance: CLARITHROMYCIN
     Indication: Infection
     Dosage: UNK
     Route: 048
     Dates: start: 20080307, end: 20080314
  64. CLARITHROMYCIN [Concomitant]
     Active Substance: CLARITHROMYCIN
     Indication: Pyrexia
     Dosage: UNK
     Route: 048
     Dates: start: 20100514, end: 20100521
  65. CLARITHROMYCIN [Concomitant]
     Active Substance: CLARITHROMYCIN
     Indication: Secretion discharge
     Dosage: UNK
     Route: 050
     Dates: start: 20120124, end: 20120201
  66. PREDNISOLONE [Concomitant]
     Active Substance: PREDNISOLONE
     Indication: Urticaria
     Dosage: UNK
     Route: 048
     Dates: start: 20091027, end: 20091027
  67. PREDNISOLONE [Concomitant]
     Active Substance: PREDNISOLONE
     Indication: Premedication
     Dosage: UNK
     Route: 048
     Dates: start: 20091110, end: 20100126
  68. HYDROCORTISONE [Concomitant]
     Active Substance: HYDROCORTISONE
     Indication: Premedication
     Dosage: UNK
     Route: 042
     Dates: start: 20091102, end: 20091102
  69. LORATADINE [Concomitant]
     Active Substance: LORATADINE
     Indication: Premedication
     Dosage: UNK
     Route: 042
     Dates: start: 20091102, end: 20091102
  70. LORATADINE [Concomitant]
     Active Substance: LORATADINE
     Dosage: UNK
     Route: 050
     Dates: start: 20120117, end: 20120427
  71. HYDROXYZINE [Concomitant]
     Active Substance: HYDROXYZINE HYDROCHLORIDE
     Indication: Premedication
     Dosage: UNK
     Route: 048
     Dates: start: 20091110, end: 20091110
  72. HYDROXYZINE [Concomitant]
     Active Substance: HYDROXYZINE HYDROCHLORIDE
     Dosage: UNK
     Route: 048
     Dates: start: 20091118, end: 20120117
  73. IBUPROFEN [Concomitant]
     Active Substance: IBUPROFEN
     Indication: Oropharyngeal pain
     Dosage: UNK
     Route: 048
     Dates: start: 20091208, end: 201001
  74. IBUPROFEN [Concomitant]
     Active Substance: IBUPROFEN
     Indication: Pain
  75. EPILIM [Concomitant]
     Active Substance: VALPROATE SODIUM
     Indication: Seizure
     Dosage: UNK
     Route: 048
     Dates: start: 20100416, end: 20100519
  76. MIDAZOLAM [Concomitant]
     Active Substance: MIDAZOLAM
     Indication: Nervous system disorder
     Dosage: UNK
     Route: 048
     Dates: start: 20100427, end: 20100519
  77. MIDAZOLAM [Concomitant]
     Active Substance: MIDAZOLAM
     Indication: Agitation
     Dosage: UNK
     Route: 048
     Dates: start: 20100519, end: 20120427
  78. MIDAZOLAM [Concomitant]
     Active Substance: MIDAZOLAM
     Dosage: UNK
     Route: 048
     Dates: start: 20101014, end: 20101014
  79. LORAZEPAM [Concomitant]
     Active Substance: LORAZEPAM
     Indication: Seizure
     Dosage: UNK
     Route: 042
     Dates: start: 20100519, end: 20100519
  80. VALPROATE SODIUM [Concomitant]
     Active Substance: VALPROATE SODIUM
     Indication: Nervous system disorder
     Dosage: UNK
     Route: 048
     Dates: start: 20100519, end: 20100608
  81. CARBAMAZEPINE [Concomitant]
     Active Substance: CARBAMAZEPINE
     Indication: Nervous system disorder
     Dosage: UNK
     Route: 048
     Dates: start: 20100608, end: 20100613
  82. CARBAMAZEPINE [Concomitant]
     Active Substance: CARBAMAZEPINE
     Indication: Seizure
     Dosage: UNK
     Route: 048
     Dates: start: 20100613, end: 20101223
  83. CARBAMAZEPINE [Concomitant]
     Active Substance: CARBAMAZEPINE
     Dosage: UNK
     Route: 050
     Dates: start: 20101223, end: 20110406
  84. CARBAMAZEPINE [Concomitant]
     Active Substance: CARBAMAZEPINE
     Dosage: UNK
     Route: 050
     Dates: start: 20101223, end: 20110427
  85. CARBAMAZEPINE [Concomitant]
     Active Substance: CARBAMAZEPINE
     Dosage: UNK
     Route: 050
     Dates: start: 20110406, end: 20110427
  86. CARBAMAZEPINE [Concomitant]
     Active Substance: CARBAMAZEPINE
     Dosage: UNK
     Route: 050
     Dates: start: 20110427, end: 20110927
  87. CARBAMAZEPINE [Concomitant]
     Active Substance: CARBAMAZEPINE
     Dosage: UNK
     Route: 048
     Dates: start: 20110927, end: 20111003
  88. CARBAMAZEPINE [Concomitant]
     Active Substance: CARBAMAZEPINE
     Dosage: UNK
     Route: 050
     Dates: start: 20111003, end: 20111019
  89. CARBAMAZEPINE [Concomitant]
     Active Substance: CARBAMAZEPINE
     Dosage: UNK
     Route: 050
     Dates: start: 20111019, end: 20111208
  90. CARBAMAZEPINE [Concomitant]
     Active Substance: CARBAMAZEPINE
     Dosage: UNK
     Route: 050
     Dates: start: 20111208, end: 201202
  91. CARBAMAZEPINE [Concomitant]
     Active Substance: CARBAMAZEPINE
     Dosage: UNK
     Route: 050
     Dates: start: 201202, end: 20120427
  92. MICONAZOLE [Concomitant]
     Active Substance: MICONAZOLE
     Indication: Oral candidiasis
     Dosage: UNK
     Route: 048
     Dates: start: 20100608, end: 20100611
  93. MICONAZOLE NITRATE [Concomitant]
     Active Substance: MICONAZOLE NITRATE
     Indication: Candida infection
     Dosage: UNK
     Route: 061
     Dates: start: 20100608, end: 20100616
  94. CEPHALEXIN [Concomitant]
     Active Substance: CEPHALEXIN
     Indication: Infection
     Dosage: UNK
     Route: 048
     Dates: start: 20100713, end: 20100719
  95. DDAVP [Concomitant]
     Active Substance: DESMOPRESSIN ACETATE
     Indication: Product used for unknown indication
     Dosage: UNK
     Route: 042
     Dates: start: 20100929, end: 20100929
  96. TRANEXAMIC ACID [Concomitant]
     Active Substance: TRANEXAMIC ACID
     Indication: Product used for unknown indication
     Dosage: UNK
     Route: 042
     Dates: start: 20100929, end: 20100930
  97. TRANEXAMIC ACID [Concomitant]
     Active Substance: TRANEXAMIC ACID
     Dosage: UNK
     Route: 050
     Dates: start: 20101001, end: 20101004
  98. CLOTRIMAZOLE [Concomitant]
     Active Substance: CLOTRIMAZOLE
     Indication: Candida infection
     Dosage: UNK
     Route: 061
     Dates: start: 20101003, end: 20101017
  99. NYSTATIN [Concomitant]
     Active Substance: NYSTATIN
     Indication: Candida infection
     Dosage: UNK
     Route: 050
     Dates: start: 20101005, end: 20101017
  100. NYSTATIN [Concomitant]
     Active Substance: NYSTATIN
     Indication: Oral candidiasis
     Dosage: UNK
     Route: 048
     Dates: start: 20110627, end: 20110702
  101. NYSTATIN [Concomitant]
     Active Substance: NYSTATIN
     Indication: Candida infection
     Dosage: UNK
     Route: 048
     Dates: start: 20110711, end: 201107
  102. NYSTATIN [Concomitant]
     Active Substance: NYSTATIN
     Dosage: UNK
     Route: 050
     Dates: start: 20120109, end: 2012
  103. NYSTATIN [Concomitant]
     Active Substance: NYSTATIN
     Dosage: UNK
     Route: 048
     Dates: start: 20120411, end: 20120416
  104. SCOPOLAMINE [Concomitant]
     Active Substance: SCOPOLAMINE
     Indication: Rhinorrhoea
     Dosage: UNK
     Route: 062
     Dates: start: 20101005, end: 20101013
  105. CHLORAL HYDRATE [Concomitant]
     Active Substance: CHLORAL HYDRATE
     Indication: Agitation
     Dosage: UNK
     Route: 050
     Dates: start: 20101013, end: 20101013
  106. DIAZEPAM [Concomitant]
     Active Substance: DIAZEPAM
     Indication: Agitation
     Dosage: UNK
     Route: 054
     Dates: start: 20101013, end: 20101013
  107. MELATONIN [Concomitant]
     Active Substance: MELATONIN
     Indication: Sleep disorder
     Dosage: UNK
     Route: 050
     Dates: start: 20101014, end: 20120427
  108. GLYCOPYRROLATE [Concomitant]
     Active Substance: GLYCOPYRROLATE
     Indication: Increased viscosity of upper respiratory secretion
     Dosage: UNK
     Route: 050
     Dates: start: 20101015, end: 20101123
  109. GLYCOPYRROLATE [Concomitant]
     Active Substance: GLYCOPYRROLATE
     Indication: Salivary hypersecretion
     Dosage: UNK
     Route: 050
     Dates: start: 20101123, end: 20101126
  110. GLYCOPYRROLATE [Concomitant]
     Active Substance: GLYCOPYRROLATE
     Dosage: UNK
     Route: 050
     Dates: start: 20101126, end: 20110106
  111. GLYCOPYRROLATE [Concomitant]
     Active Substance: GLYCOPYRROLATE
     Dosage: UNK
     Route: 050
     Dates: start: 20110106, end: 20110427
  112. GLYCOPYRROLATE [Concomitant]
     Active Substance: GLYCOPYRROLATE
     Dosage: UNK
     Route: 050
     Dates: start: 20110427, end: 20120424
  113. MOVICOL [Concomitant]
     Active Substance: POLYETHYLENE GLYCOL 3350\POTASSIUM CHLORIDE\SODIUM BICARBONATE\SODIUM CHLORIDE
     Indication: Constipation
     Dosage: UNK
     Route: 050
     Dates: start: 20101205, end: 20120427
  114. SEASONAL DEFENSE [Concomitant]
     Indication: Antiviral prophylaxis
     Dosage: UNK
     Route: 058
     Dates: start: 20101210, end: 20101210
  115. ZOPICLONE [Concomitant]
     Active Substance: ZOPICLONE
     Indication: Sleep disorder
     Dosage: UNK
     Route: 050
     Dates: start: 20110106, end: 20110225
  116. CIPROFLOXACIN [Concomitant]
     Active Substance: CIPROFLOXACIN
     Indication: Infection
     Dosage: UNK
     Route: 050
     Dates: start: 20110107, end: 20110114
  117. CIPROFLOXACIN [Concomitant]
     Active Substance: CIPROFLOXACIN
     Indication: Lower respiratory tract infection
     Dosage: UNK
     Route: 050
     Dates: start: 20110727, end: 20110803
  118. CIPROFLOXACIN [Concomitant]
     Active Substance: CIPROFLOXACIN
     Indication: Rhinorrhoea
     Dosage: UNK
     Route: 050
     Dates: start: 20120409, end: 20120416
  119. CIPROFLOXACIN [Concomitant]
     Active Substance: CIPROFLOXACIN
     Indication: Cough
  120. FLUCLOXACILLIN [Concomitant]
     Active Substance: FLUCLOXACILLIN
     Indication: Infection
     Dosage: UNK
     Route: 050
     Dates: start: 20110615, end: 20110621
  121. FLUCLOXACILLIN [Concomitant]
     Active Substance: FLUCLOXACILLIN
     Indication: Gastrostomy
     Dosage: UNK
     Route: 050
     Dates: start: 20110819, end: 20110826
  122. FLUCONAZOLE [Concomitant]
     Active Substance: FLUCONAZOLE
     Indication: Gastrostomy
     Dosage: UNK
     Route: 050
     Dates: start: 20110911, end: 20110914
  123. SELENIUM SULFIDE [Concomitant]
     Active Substance: SELENIUM SULFIDE
     Indication: Seborrhoeic dermatitis
     Dosage: UNK
     Route: 061
     Dates: start: 20110927, end: 200201
  124. INFLUENZA VIRUS VACCINE [Concomitant]
     Active Substance: INFLUENZA VIRUS VACCINE
     Indication: Influenza
     Dosage: UNK
     Route: 030
     Dates: start: 20111114, end: 20111114
  125. LAMOTRIGINE [Concomitant]
     Active Substance: LAMOTRIGINE
     Indication: Seizure
     Dosage: UNK
     Route: 050
     Dates: start: 201112, end: 20120118
  126. LAMOTRIGINE [Concomitant]
     Active Substance: LAMOTRIGINE
     Dosage: UNK
     Route: 050
     Dates: start: 20120118, end: 20120131
  127. LAMOTRIGINE [Concomitant]
     Active Substance: LAMOTRIGINE
     Dosage: UNK
     Route: 050
     Dates: start: 20120201, end: 20120427
  128. EPINEPHRINE [Concomitant]
     Active Substance: EPINEPHRINE
     Indication: Pneumonia
     Dosage: UNK
     Route: 055
     Dates: start: 20120424, end: 20120424
  129. OMEPRAZOLE [Concomitant]
     Active Substance: OMEPRAZOLE
     Indication: Epigastric discomfort
     Dosage: UNK
     Route: 050
     Dates: start: 20120427, end: 20120427
  130. METRONIDAZOLE [Concomitant]
     Active Substance: METRONIDAZOLE
     Indication: Pneumonia
     Dosage: UNK
     Route: 042
     Dates: start: 20120424, end: 20120427

REACTIONS (1)
  - Sleep apnoea syndrome [Recovered/Resolved]

NARRATIVE: CASE EVENT DATE: 20110201
